APPROVED DRUG PRODUCT: METOLAZONE
Active Ingredient: METOLAZONE
Strength: 2.5MG
Dosage Form/Route: TABLET;ORAL
Application: A075543 | Product #001
Applicant: ANI PHARMACEUTICALS INC
Approved: Jan 6, 2004 | RLD: No | RS: No | Type: DISCN